FAERS Safety Report 5367459-7 (Version None)
Quarter: 2007Q2

REPORT INFORMATION
  Report Type: 
  Country: None (occurrence: None)
  Receive Date: 20070622
  Receipt Date: 20060801
  Transmission Date: 20071010
  Serious: No
  Sender: FDA-Public Use
  Company Number: US-ASTRAZENECA-2006UW15394

PATIENT
  Age: 55 Year
  Sex: Female
  Weight: 93.9 kg

DRUGS (4)
  1. PULMICORT [Suspect]
     Dosage: 2 PUFFS DAILY
     Route: 055
     Dates: start: 20060601
  2. VICODIN [Concomitant]
  3. ALBUTEROL [Concomitant]
  4. MORPHINE [Concomitant]

REACTIONS (3)
  - BRONCHITIS [None]
  - HERPES ZOSTER [None]
  - SINUSITIS [None]
